FAERS Safety Report 7712878-4 (Version None)
Quarter: 2011Q3

REPORT INFORMATION
  Report Type: 
  Country: None (occurrence: None)
  Receive Date: 20110826
  Receipt Date: 20110822
  Transmission Date: 20111222
  Serious: Yes (Life-Threatening, Hospitalization, Other)
  Sender: FDA-Public Use
  Company Number: PHHY2010BE43841

PATIENT
  Sex: Male

DRUGS (1)
  1. METHERGINE [Suspect]
     Dosage: 7 X 15 DRP, UNK
     Dates: start: 20100630, end: 20100706

REACTIONS (6)
  - WRONG DRUG ADMINISTERED [None]
  - VOMITING [None]
  - HYPERTENSION [None]
  - TOXICITY TO VARIOUS AGENTS [None]
  - COMA [None]
  - OLIGURIA [None]
